FAERS Safety Report 23905803 (Version 1)
Quarter: 2024Q2

REPORT INFORMATION
  Report Type: Spontaneous
  Country: US (occurrence: US)
  Receive Date: 20240527
  Receipt Date: 20240527
  Transmission Date: 20240715
  Serious: No
  Sender: FDA-Public Use
  Company Number: US-PFIZER INC-202400175899

PATIENT
  Age: 82 Year
  Sex: Male

DRUGS (1)
  1. VELSIPITY [Suspect]
     Active Substance: ETRASIMOD ARGININE
     Indication: Colitis ulcerative
     Dosage: 2 MG, 1X/DAY
     Dates: start: 20240508, end: 20240516

REACTIONS (2)
  - Visual impairment [Recovered/Resolved]
  - Visual acuity reduced transiently [Recovered/Resolved]

NARRATIVE: CASE EVENT DATE: 20240508
